FAERS Safety Report 8465485 (Version 4)
Quarter: 2012Q4

REPORT INFORMATION
  Report Type: 
  Country: US (occurrence: US)
  Receive Date: 20120319
  Receipt Date: 20121018
  Transmission Date: 20130627
  Serious: Yes (Hospitalization, Other)
  Sender: FDA-Public Use
  Company Number: US-GLAXOSMITHKLINE-A0969978A

PATIENT
  Age: 56 Year
  Sex: Female

DRUGS (2)
  1. ALLI [Suspect]
     Indication: WEIGHT LOSS DIET
     Route: 048
     Dates: start: 20120301, end: 20120308
  2. UNSPECIFIED MEDICATION [Concomitant]

REACTIONS (13)
  - Asthma [Recovered/Resolved]
  - Condition aggravated [Recovered/Resolved]
  - Abasia [Recovered/Resolved]
  - Dyspnoea [Recovered/Resolved]
  - Pain [Recovered/Resolved]
  - Anxiety [Recovered/Resolved]
  - Cough [Recovered/Resolved]
  - Adverse event [Recovered/Resolved]
  - Respiratory distress [Unknown]
  - Pneumonia [Unknown]
  - Hypoxia [Unknown]
  - Swelling [Recovered/Resolved]
  - Hypothyroidism [Not Recovered/Not Resolved]
